FAERS Safety Report 7370454-X (Version None)
Quarter: 2011Q1

REPORT INFORMATION
  Report Type: 
  Country: None (occurrence: None)
  Receive Date: 20110323
  Receipt Date: 20110314
  Transmission Date: 20110831
  Serious: Yes (Hospitalization)
  Sender: FDA-Public Use
  Company Number: US-ASTRAZENECA-2011SE14217

PATIENT
  Age: 70 Year
  Sex: Female

DRUGS (12)
  1. NEXIUM [Suspect]
     Indication: GASTROOESOPHAGEAL REFLUX DISEASE
     Route: 048
     Dates: start: 20010101
  2. ZYFLO [Concomitant]
  3. ADVAIR DISKUS 100/50 [Concomitant]
  4. PLAVIX [Concomitant]
  5. DIAZEPAM [Concomitant]
  6. REGLAN [Suspect]
     Route: 065
  7. LEVOTHYROXINE SODIUM [Concomitant]
     Indication: THYROID DISORDER
  8. ZOCOR [Concomitant]
  9. SEROQUEL [Suspect]
     Route: 048
  10. LYRICA [Concomitant]
  11. GLIMEPIRIDE [Concomitant]
  12. CYMBALTA [Concomitant]

REACTIONS (9)
  - CEREBROSPINAL FLUID DRAINAGE [None]
  - NYSTAGMUS [None]
  - VOMITING [None]
  - DRUG DOSE OMISSION [None]
  - TARDIVE DYSKINESIA [None]
  - ATAXIA [None]
  - VERTIGO [None]
  - GASTROOESOPHAGEAL REFLUX DISEASE [None]
  - FALL [None]
